APPROVED DRUG PRODUCT: AMNESTROGEN
Active Ingredient: ESTROGENS, ESTERIFIED
Strength: 2.5MG
Dosage Form/Route: TABLET;ORAL
Application: A083266 | Product #004
Applicant: BRISTOL MYERS SQUIBB CO
Approved: Approved Prior to Jan 1, 1982 | RLD: No | RS: No | Type: DISCN